FAERS Safety Report 18164578 (Version 2)
Quarter: 2020Q4

REPORT INFORMATION
  Report Type: Spontaneous
  Country: US (occurrence: US)
  Receive Date: 20200818
  Receipt Date: 20201102
  Transmission Date: 20210113
  Serious: No
  Sender: FDA-Public Use
  Company Number: US-GILEAD-2020-0490453

PATIENT
  Sex: Male
  Weight: 96.6 kg

DRUGS (35)
  1. DESCOVY [Concomitant]
     Active Substance: EMTRICITABINE\TENOFOVIR ALAFENAMIDE FUMARATE
  2. NORVIR [Concomitant]
     Active Substance: RITONAVIR
  3. AMOXICILLIN. [Concomitant]
     Active Substance: AMOXICILLIN
  4. DARUNAVIR [Concomitant]
     Active Substance: DARUNAVIR
  5. VALTREX [Concomitant]
     Active Substance: VALACYCLOVIR HYDROCHLORIDE
  6. TIVICAY [Concomitant]
     Active Substance: DOLUTEGRAVIR SODIUM
  7. VALACYCLOVIR HCL [Concomitant]
     Active Substance: VALACYCLOVIR HYDROCHLORIDE
  8. AMLODIPINE [Concomitant]
     Active Substance: AMLODIPINE BESYLATE
  9. TRUVADA [Suspect]
     Active Substance: EMTRICITABINE\TENOFOVIR DISOPROXIL FUMARATE
     Indication: HIV INFECTION
     Dosage: UNK
     Route: 048
     Dates: start: 2002, end: 20180702
  10. PREZISTA [Concomitant]
     Active Substance: DARUNAVIR ETHANOLATE
  11. ZERIT [Concomitant]
     Active Substance: STAVUDINE
  12. SULFAMETHOXAZOLE AND TRIMETHOPRIM [Concomitant]
     Active Substance: SULFAMETHOXAZOLE\TRIMETHOPRIM
  13. COMPLERA [Suspect]
     Active Substance: EMTRICITABINE\RILPIVIRINE HYDROCHLORIDE\TENOFOVIR DISOPROXIL FUMARATE
     Indication: HIV INFECTION
     Dosage: UNK
     Route: 048
     Dates: start: 2002, end: 20140324
  14. INVIRASE [Concomitant]
     Active Substance: SAQUINAVIR MESYLATE
  15. ISENTRESS [Concomitant]
     Active Substance: RALTEGRAVIR POTASSIUM
  16. DIDANOSINE. [Concomitant]
     Active Substance: DIDANOSINE
  17. CETIRIZINE [Concomitant]
     Active Substance: CETIRIZINE HYDROCHLORIDE
  18. FLUTICASONE [FLUTICASONE PROPIONATE] [Concomitant]
  19. VIDEX EC [Concomitant]
     Active Substance: DIDANOSINE
  20. HYDROXYZINE [Concomitant]
     Active Substance: HYDROXYZINE HYDROCHLORIDE
  21. RITONAVIR. [Concomitant]
     Active Substance: RITONAVIR
  22. EPIVIR [Concomitant]
     Active Substance: LAMIVUDINE
  23. VIRACEPT [Concomitant]
     Active Substance: NELFINAVIR MESYLATE
  24. ALBUTEROL [SALBUTAMOL SULFATE] [Concomitant]
     Active Substance: ALBUTEROL SULFATE
  25. DOXYCYCLINE. [Concomitant]
     Active Substance: DOXYCYCLINE
  26. PITAVASTATIN. [Concomitant]
     Active Substance: PITAVASTATIN CALCIUM
  27. NAPROXEN. [Concomitant]
     Active Substance: NAPROXEN
  28. PREDNISOLONE. [Concomitant]
     Active Substance: PREDNISOLONE
  29. VIREAD [Suspect]
     Active Substance: TENOFOVIR DISOPROXIL FUMARATE
     Indication: HIV INFECTION
     Dosage: UNK
     Route: 048
     Dates: start: 2002, end: 200704
  30. ATROPINE. [Concomitant]
     Active Substance: ATROPINE
  31. GUAIFENESIN. [Concomitant]
     Active Substance: GUAIFENESIN
  32. CRIXIVAN [Concomitant]
     Active Substance: INDINAVIR SULFATE
  33. KALETRA [Concomitant]
     Active Substance: LOPINAVIR\RITONAVIR
  34. MULTIVITAMINS [VITAMINS NOS] [Concomitant]
     Active Substance: VITAMINS
  35. RALTEGRAVIR. [Concomitant]
     Active Substance: RALTEGRAVIR

REACTIONS (5)
  - Renal impairment [Not Recovered/Not Resolved]
  - Emotional distress [Unknown]
  - Pain [Unknown]
  - Bone disorder [Not Recovered/Not Resolved]
  - Bone density decreased [Unknown]

NARRATIVE: CASE EVENT DATE: 2018
